FAERS Safety Report 11467871 (Version 2)
Quarter: 2015Q4

REPORT INFORMATION
  Report Type: Spontaneous
  Country: US (occurrence: US)
  Receive Date: 20150908
  Receipt Date: 20151006
  Transmission Date: 20160304
  Serious: No
  Sender: FDA-Public Use
  Company Number: ALCN2015US005317

PATIENT
  Age: 42 Year
  Sex: Female

DRUGS (1)
  1. SYSTANE BALANCE [Suspect]
     Active Substance: PROPYLENE GLYCOL
     Indication: DRY EYE
     Dosage: 1 GTT, BID
     Route: 047
     Dates: start: 2014, end: 2014

REACTIONS (2)
  - Drug ineffective [Recovered/Resolved]
  - Eyelid disorder [Recovered/Resolved]

NARRATIVE: CASE EVENT DATE: 2014
